FAERS Safety Report 11662619 (Version 1)
Quarter: 2015Q4

REPORT INFORMATION
  Report Type: Spontaneous
  Country: US (occurrence: US)
  Receive Date: 20151027
  Receipt Date: 20151027
  Transmission Date: 20160304
  Serious: No
  Sender: FDA-Public Use
  Company Number: US-MEDA-2012110125

PATIENT
  Age: 46 Year
  Sex: Male

DRUGS (1)
  1. DYMISTA [Suspect]
     Active Substance: AZELASTINE HYDROCHLORIDE\FLUTICASONE PROPIONATE
     Dosage: 137/50 MCG
     Dates: start: 20121029, end: 20121129

REACTIONS (1)
  - Epistaxis [Recovering/Resolving]
